FAERS Safety Report 5319348-1 (Version None)
Quarter: 2007Q2

REPORT INFORMATION
  Report Type: 
  Country: None (occurrence: None)
  Receive Date: 20070508
  Receipt Date: 20070423
  Transmission Date: 20071010
  Serious: Yes (Death, Hospitalization)
  Sender: FDA-Public Use
  Company Number: CN-GENENTECH-240000

PATIENT
  Sex: Female
  Weight: 57 kg

DRUGS (8)
  1. AVASTIN [Suspect]
     Indication: NEOPLASM MALIGNANT
     Dosage: 290 MG, Q2W
     Route: 042
     Dates: start: 20061211
  2. BETALOC [Concomitant]
     Indication: DRUG USE FOR UNKNOWN INDICATION
     Dates: start: 20070315, end: 20070320
  3. NIFEDIPINE [Concomitant]
     Indication: DRUG USE FOR UNKNOWN INDICATION
  4. INDOMETHACIN [Concomitant]
     Indication: DRUG USE FOR UNKNOWN INDICATION
  5. GLUTATHIONE [Concomitant]
     Indication: DRUG USE FOR UNKNOWN INDICATION
  6. FAMOTIDINE [Concomitant]
     Indication: DRUG USE FOR UNKNOWN INDICATION
  7. CAPTOPRIL [Concomitant]
     Indication: DRUG USE FOR UNKNOWN INDICATION
  8. ATENOLOL [Concomitant]
     Indication: DRUG USE FOR UNKNOWN INDICATION

REACTIONS (7)
  - CONFUSIONAL STATE [None]
  - ENCEPHALOPATHY [None]
  - HYPERTENSION [None]
  - LOSS OF CONSCIOUSNESS [None]
  - METASTASES TO MENINGES [None]
  - NAUSEA [None]
  - VOMITING [None]
